FAERS Safety Report 7110440-8 (Version None)
Quarter: 2010Q4

REPORT INFORMATION
  Report Type: 
  Country: None (occurrence: None)
  Receive Date: 20101118
  Receipt Date: 20101110
  Transmission Date: 20110411
  Serious: Yes (Other)
  Sender: FDA-Public Use
  Company Number: US-SANOFI-AVENTIS-2010SA068930

PATIENT
  Age: 53 Year
  Sex: Female

DRUGS (1)
  1. AMBIEN [Suspect]
     Route: 048
     Dates: start: 20000101

REACTIONS (2)
  - HEPATIC CYST [None]
  - THERAPEUTIC RESPONSE DECREASED [None]
